FAERS Safety Report 19521720 (Version 1)
Quarter: 2021Q3

REPORT INFORMATION
  Report Type: Spontaneous
  Country: CA (occurrence: CA)
  Receive Date: 20210712
  Receipt Date: 20210712
  Transmission Date: 20211014
  Serious: Yes (Hospitalization)
  Sender: FDA-Public Use
  Company Number: CA-PFIZER INC-2021805163

PATIENT
  Age: 79 Year
  Sex: Female
  Weight: 73 kg

DRUGS (9)
  1. CALCIUM [Concomitant]
     Active Substance: CALCIUM
     Dosage: UNK
  2. SYNTHROID [Concomitant]
     Active Substance: LEVOTHYROXINE SODIUM
     Dosage: UNK
  3. CRESTOR [Concomitant]
     Active Substance: ROSUVASTATIN CALCIUM
     Dosage: UNK
  4. HEPARIN SODIUM. [Suspect]
     Active Substance: HEPARIN SODIUM
     Indication: PULMONARY EMBOLISM
  5. ASA [Concomitant]
     Active Substance: ASPIRIN
     Dosage: UNK
  6. HEPARIN SODIUM. [Suspect]
     Active Substance: HEPARIN SODIUM
     Indication: THROMBOPHLEBITIS
     Dosage: 40 ML
     Route: 040
  7. COVERSYL [PERINDOPRIL ERBUMINE] [Concomitant]
     Active Substance: PERINDOPRIL ERBUMINE
     Dosage: UNK
  8. CELEXA [Concomitant]
     Active Substance: CITALOPRAM HYDROBROMIDE
     Dosage: UNK
  9. PLAVIX [Concomitant]
     Active Substance: CLOPIDOGREL BISULFATE
     Dosage: UNK

REACTIONS (2)
  - Post procedural haematoma [Unknown]
  - Angiogram [Unknown]
